FAERS Safety Report 6162948-X (Version None)
Quarter: 2009Q2

REPORT INFORMATION
  Report Type: 
  Country: None (occurrence: None)
  Receive Date: 20090420
  Receipt Date: 20090409
  Transmission Date: 20091009
  Serious: Yes (Death, Hospitalization)
  Sender: FDA-Public Use
  Company Number: DSA_33496_2009

PATIENT
  Age: 41 Year
  Sex: Female

DRUGS (5)
  1. XENAZINE [Suspect]
     Indication: HUNTINGTON'S CHOREA
     Dosage: 37.5 MG
     Dates: end: 20090407
  2. PROZAC [Concomitant]
  3. FISH OIL [Concomitant]
  4. COENZYME Q10 [Concomitant]
  5. CREATININE [Concomitant]

REACTIONS (10)
  - ABASIA [None]
  - DRUG INEFFECTIVE [None]
  - FALL [None]
  - HYPOPHAGIA [None]
  - MYOCARDIAL INFARCTION [None]
  - PAIN [None]
  - PNEUMONIA ASPIRATION [None]
  - SEPSIS [None]
  - STRESS [None]
  - WEIGHT DECREASED [None]
